FAERS Safety Report 5028044-X (Version None)
Quarter: 2006Q2

REPORT INFORMATION
  Report Type: 
  Country: None (occurrence: None)
  Receive Date: 20060612
  Receipt Date: 20060523
  Transmission Date: 20061013
  Serious: Yes (Hospitalization)
  Sender: FDA-Public Use
  Company Number: ENTC2006-0004

PATIENT
  Age: 82 Year
  Sex: Female

DRUGS (13)
  1. STALEVO 100 [Suspect]
     Indication: PARKINSONISM
     Dosage: 100+25+200 MG 1X4
     Dates: start: 20050930, end: 20051201
  2. ALOPAM [Concomitant]
  3. VAGIFEM [Concomitant]
  4. AMANTADINE HCL [Concomitant]
  5. PINEX [Concomitant]
  6. NOBLIGAN R [Concomitant]
  7. IBUMETIN [Concomitant]
  8. MOVICOL [Concomitant]
  9. CABASER [Concomitant]
  10. CETIRIZIN [Concomitant]
  11. SULFAMETHIZOL [Concomitant]
  12. EYEDROPS VISCOSE [Concomitant]
  13. PERILAX [Concomitant]

REACTIONS (3)
  - DIARRHOEA [None]
  - HYPOKALAEMIA [None]
  - HYPONATRAEMIA [None]
